FAERS Safety Report 7126144-1 (Version None)
Quarter: 2010Q4

REPORT INFORMATION
  Report Type: 
  Country: None (occurrence: None)
  Receive Date: 20101129
  Receipt Date: 20101119
  Transmission Date: 20110411
  Serious: Yes (Death)
  Sender: FDA-Public Use
  Company Number: UA-TEVA-XM22-04-254332GER

PATIENT
  Sex: Male
  Weight: 80 kg

DRUGS (49)
  1. XM22 PEG-FILGRASTIM [Suspect]
     Indication: COLONY STIMULATING FACTOR PROPHYLAXIS
     Dosage: BLINDED XM22 6 MG OR PLACEBO
     Route: 058
     Dates: start: 20100726, end: 20100726
  2. XM22 PEG-FILGRASTIM [Suspect]
     Dosage: BLINDED XM22 6 MG OR PLACEBO
     Route: 058
     Dates: start: 20100821, end: 20100821
  3. XM22 PEG-FILGRASTIM [Suspect]
     Dosage: BLINDED XM22 6 MG OR PLACEBO
     Route: 058
     Dates: start: 20100911, end: 20100911
  4. XM22 PEG-FILGRASTIM [Suspect]
     Dosage: BLINDED XM22 6 MG OR PLACEBO
     Route: 058
     Dates: start: 20101014, end: 20101014
  5. ONDANSETRON [Concomitant]
     Indication: PREMEDICATION
     Route: 042
     Dates: start: 20100723, end: 20100725
  6. ONDANSETRON [Concomitant]
     Indication: VOMITING
     Route: 042
     Dates: start: 20100818, end: 20100820
  7. ONDANSETRON [Concomitant]
     Route: 042
     Dates: start: 20100908, end: 20100911
  8. ONDANSETRON [Concomitant]
     Route: 042
     Dates: start: 20101011, end: 20101013
  9. ONDANSETRON [Concomitant]
     Route: 042
     Dates: start: 20101021, end: 20101021
  10. DIPHENHYDRAMINE HCL [Concomitant]
     Indication: PREMEDICATION
     Route: 042
     Dates: start: 20100723, end: 20100725
  11. DIPHENHYDRAMINE HCL [Concomitant]
     Indication: PULMONARY OEDEMA
     Route: 042
     Dates: start: 20100818, end: 20100820
  12. DIPHENHYDRAMINE HCL [Concomitant]
     Route: 042
     Dates: start: 20100908, end: 20100910
  13. DIPHENHYDRAMINE HCL [Concomitant]
     Route: 042
     Dates: start: 20101011, end: 20101013
  14. DIPHENHYDRAMINE HCL [Concomitant]
     Route: 042
     Dates: start: 20101022, end: 20101022
  15. DEXAMETHASONE [Concomitant]
     Indication: PREMEDICATION
     Route: 042
     Dates: start: 20100723, end: 20100725
  16. DEXAMETHASONE [Concomitant]
     Indication: PULMONARY OEDEMA
     Route: 042
     Dates: start: 20100813, end: 20100815
  17. DEXAMETHASONE [Concomitant]
     Route: 042
     Dates: start: 20100818, end: 20100820
  18. DEXAMETHASONE [Concomitant]
     Route: 042
     Dates: start: 20100908, end: 20100910
  19. DEXAMETHASONE [Concomitant]
     Route: 042
     Dates: start: 20101011, end: 20101013
  20. DEXAMETHASONE [Concomitant]
     Route: 042
     Dates: start: 20101022, end: 20101023
  21. SODIUM CHLORIDE [Concomitant]
     Route: 042
     Dates: start: 20100813, end: 20100815
  22. ASCORBIC ACID [Concomitant]
     Route: 042
     Dates: start: 20100813, end: 20100815
  23. TOT'HEMA [Concomitant]
     Indication: ANAEMIA
     Route: 048
     Dates: start: 20100828, end: 20101021
  24. AMINOCAPROIC ACID [Concomitant]
     Indication: PULMONARY OEDEMA
     Route: 042
     Dates: start: 20101021, end: 20101021
  25. RED BLOOD CELLS [Concomitant]
     Indication: ANAEMIA
     Route: 042
     Dates: start: 20101021, end: 20101021
  26. ETAMSILATE [Concomitant]
     Indication: PULMONARY OEDEMA
     Dates: start: 20101021, end: 20101021
  27. METAMIZOLE SODIUM [Concomitant]
     Indication: PULMONARY OEDEMA
     Route: 030
     Dates: start: 20101021, end: 20101021
  28. METAMIZOLE SODIUM [Concomitant]
     Route: 042
     Dates: start: 20101022, end: 20101022
  29. DIPHENHYDRAMINE HCL [Concomitant]
     Route: 030
     Dates: start: 20101021, end: 20101021
  30. PLASMA [Concomitant]
     Indication: ANAEMIA
     Route: 042
     Dates: start: 20101021, end: 20101021
  31. PLASMA [Concomitant]
     Route: 042
     Dates: start: 20101022, end: 20101022
  32. AMINOPHYLLINE [Concomitant]
     Indication: PULMONARY OEDEMA
     Route: 042
     Dates: start: 20101022, end: 20101023
  33. PRIMAXIN [Concomitant]
     Indication: FEBRILE NEUTROPENIA
     Route: 042
     Dates: start: 20101022, end: 20101023
  34. PREDNISOLONE [Concomitant]
     Indication: PULMONARY OEDEMA
     Route: 030
     Dates: start: 20101022
  35. NIKETHAMIDE [Concomitant]
     Indication: PULMONARY OEDEMA
     Route: 030
     Dates: start: 20101022
  36. L-LYSINE AESCINATE [Concomitant]
     Indication: PULMONARY OEDEMA
     Route: 042
     Dates: start: 20101022, end: 20101023
  37. CORGLYCON (CONVALLARIA MAJALIS EXTRACT) [Concomitant]
     Indication: PULMONARY OEDEMA
     Route: 042
     Dates: start: 20101022, end: 20101023
  38. FUROSEMIDE [Concomitant]
     Indication: PULMONARY OEDEMA
     Route: 042
     Dates: start: 20101022, end: 20101023
  39. COCARBOXYLASE [Concomitant]
     Indication: PULMONARY OEDEMA
     Route: 030
     Dates: start: 20101022, end: 20101022
  40. DOPAMINE [Concomitant]
     Indication: PULMONARY OEDEMA
     Route: 042
     Dates: start: 20101022, end: 20101023
  41. INOSINE [Concomitant]
     Indication: PULMONARY OEDEMA
     Route: 042
     Dates: start: 20101022, end: 20101022
  42. CISPLATIN [Suspect]
     Indication: NON-SMALL CELL LUNG CANCER
     Route: 041
     Dates: start: 20100723, end: 20100723
  43. CISPLATIN [Suspect]
     Route: 041
     Dates: start: 20100818, end: 20100818
  44. CISPLATIN [Suspect]
     Route: 041
     Dates: start: 20100908, end: 20100908
  45. CISPLATIN [Suspect]
     Route: 041
     Dates: start: 20101011, end: 20101011
  46. ETOPOSIDE [Suspect]
     Indication: NON-SMALL CELL LUNG CANCER
     Route: 041
     Dates: start: 20100723, end: 20100725
  47. ETOPOSIDE [Suspect]
     Route: 041
     Dates: start: 20100818, end: 20100820
  48. ETOPOSIDE [Suspect]
     Route: 041
     Dates: start: 20100908, end: 20100910
  49. ETOPOSIDE [Suspect]
     Route: 041
     Dates: start: 20101011, end: 20101013

REACTIONS (1)
  - PULMONARY OEDEMA [None]
